FAERS Safety Report 6643527-4 (Version None)
Quarter: 2010Q1

REPORT INFORMATION
  Report Type: 
  Country: None (occurrence: None)
  Receive Date: 20100320
  Receipt Date: 20100304
  Transmission Date: 20100710
  Serious: No
  Sender: FDA-Public Use
  Company Number: US-B.I. PHARMACEUTICALS,INC./RIDGEFIELD-2010-BP-01858BP

PATIENT
  Sex: Male

DRUGS (20)
  1. SPIRIVA [Suspect]
     Indication: CHRONIC OBSTRUCTIVE PULMONARY DISEASE
     Dosage: 18 MCG
     Route: 055
     Dates: start: 20091101
  2. SPIRIVA [Suspect]
     Dosage: 18 MCG
     Route: 055
     Dates: start: 20050101, end: 20050101
  3. ASPIRIN [Concomitant]
  4. BUDESONIDE [Concomitant]
  5. FINASTERIDE [Concomitant]
  6. LISINOPRIL [Concomitant]
  7. MECLIZINE [Concomitant]
  8. METOPROLOL TARTRATE [Concomitant]
  9. ROSUVASTATIN [Concomitant]
  10. TERAZOSIN HCL [Concomitant]
  11. ADVAIR DISKUS 100/50 [Concomitant]
  12. BIPAP [Concomitant]
  13. ARTIFICIAL TEARS POLYVINYL ALCOHOL [Concomitant]
     Indication: DRY EYE
  14. LORAZEPAM [Concomitant]
     Indication: ANXIETY
     Route: 048
  15. LORAZEPAM [Concomitant]
     Indication: AGITATION
  16. LUBRICATING OPH OINT [Concomitant]
     Indication: DRY EYE
  17. MOISTURIZING LOTION [Concomitant]
     Indication: DRY SKIN
     Route: 061
  18. OMEPRAZOLE [Concomitant]
     Indication: ABDOMINAL DISCOMFORT
     Dosage: 20 MG
     Route: 048
  19. OMEPRAZOLE [Concomitant]
     Indication: GASTROOESOPHAGEAL REFLUX DISEASE
  20. SODIUM HYALURONATE [Concomitant]
     Route: 014

REACTIONS (1)
  - DRUG INEFFECTIVE [None]
